FAERS Safety Report 6793279-2 (Version None)
Quarter: 2010Q2

REPORT INFORMATION
  Report Type: 
  Country: None (occurrence: None)
  Receive Date: 20100624
  Receipt Date: 20091013
  Transmission Date: 20101027
  Serious: Yes (Death)
  Sender: FDA-Public Use
  Company Number: US-MYLANLABS-2009S1018057

PATIENT
  Age: 65 Year
  Sex: Female

DRUGS (10)
  1. CLOZAPINE [Suspect]
     Indication: SCHIZOPHRENIA
     Route: 048
     Dates: end: 20090904
  2. CLOZAPINE [Suspect]
     Route: 048
     Dates: end: 20090904
  3. CELEXA [Concomitant]
  4. SYNTHROID [Concomitant]
  5. LISINOPRIL [Concomitant]
  6. METFORMIN HCL [Concomitant]
  7. NAPROXEN [Concomitant]
  8. RISPERDAL [Concomitant]
  9. SIMVASTATIN [Concomitant]
  10. CALCIUM CARBONATE [Concomitant]

REACTIONS (1)
  - MYOCARDIAL INFARCTION [None]
